FAERS Safety Report 14160497 (Version 5)
Quarter: 2018Q1

REPORT INFORMATION
  Report Type: Spontaneous
  Country: JP (occurrence: JP)
  Receive Date: 20171106
  Receipt Date: 20180212
  Transmission Date: 20180508
  Serious: Yes (Hospitalization)
  Sender: FDA-Public Use
  Company Number: JP-VIFOR (INTERNATIONAL) INC.-VIT-2017-12049

PATIENT
  Age: 76 Year
  Sex: Male

DRUGS (10)
  1. AMLODIPINE [Concomitant]
     Active Substance: AMLODIPINE BESYLATE
     Route: 065
  2. MOSAPRIDE CITRATE [Concomitant]
     Active Substance: MOSAPRIDE CITRATE
     Route: 065
     Dates: start: 20170214
  3. MIRCERA [Suspect]
     Active Substance: METHOXY POLYETHYLENE GLYCOL-EPOETIN BETA
     Route: 058
     Dates: start: 20170217, end: 20170217
  4. MIRCERA [Suspect]
     Active Substance: METHOXY POLYETHYLENE GLYCOL-EPOETIN BETA
     Indication: NEPHROGENIC ANAEMIA
     Route: 058
     Dates: start: 2016, end: 20170123
  5. FLUNITRAZEPAM [Concomitant]
     Active Substance: FLUNITRAZEPAM
     Route: 065
  6. MIYA-BM [Concomitant]
     Active Substance: CLOSTRIDIUM BUTYRICUM SPORES STRAIN M-55
     Route: 065
  7. FUROSEMIDE. [Concomitant]
     Active Substance: FUROSEMIDE
     Route: 065
  8. TRAMACET [Concomitant]
     Active Substance: ACETAMINOPHEN\TRAMADOL
     Route: 065
  9. AVAPRO [Concomitant]
     Active Substance: IRBESARTAN
     Route: 065
  10. LUNESTA [Concomitant]
     Active Substance: ESZOPICLONE
     Route: 065

REACTIONS (5)
  - Contraindicated product administered [Unknown]
  - Malaise [Unknown]
  - Aplasia pure red cell [Not Recovered/Not Resolved]
  - Pleural effusion [Unknown]
  - Cardiac failure congestive [Recovered/Resolved]

NARRATIVE: CASE EVENT DATE: 201701
